FAERS Safety Report 5148481-2 (Version None)
Quarter: 2006Q4

REPORT INFORMATION
  Report Type: 
  Country: None (occurrence: None)
  Receive Date: 20061107
  Receipt Date: 20061025
  Transmission Date: 20070319
  Serious: Yes (Hospitalization)
  Sender: FDA-Public Use
  Company Number: AND_0466_2006

PATIENT
  Age: 77 Year
  Sex: Female

DRUGS (1)
  1. METFORMIN [Suspect]
     Indication: DIABETES MELLITUS NON-INSULIN-DEPENDENT
     Dosage: 1 DF PO
     Route: 048

REACTIONS (4)
  - DIARRHOEA [None]
  - HAEMODIALYSIS [None]
  - LACTIC ACIDOSIS [None]
  - RENAL FAILURE ACUTE [None]
